FAERS Safety Report 6089308-4 (Version None)
Quarter: 2009Q1

REPORT INFORMATION
  Report Type: 
  Country: None (occurrence: None)
  Receive Date: 20090224
  Receipt Date: 20090218
  Transmission Date: 20090719
  Serious: Yes (Hospitalization, Other)
  Sender: FDA-Public Use
  Company Number: US-ELI_LILLY_AND_COMPANY-US200812002388

PATIENT
  Sex: Female

DRUGS (9)
  1. BYETTA [Suspect]
     Dosage: UNK, 2/D
     Route: 065
     Dates: start: 20080801, end: 20080901
  2. BYETTA [Suspect]
     Dosage: UNK, 2/D
     Dates: start: 20080901, end: 20081001
  3. LOVENOX [Concomitant]
     Dosage: UNK, DAILY (1/D)
  4. COREG [Concomitant]
     Dosage: 6.25 MG, DAILY (1/D)
  5. METFORMIN [Concomitant]
     Dosage: 1000 MG, 2/D
  6. AMARYL [Concomitant]
     Dosage: 4 MG, 2/D
  7. LANTUS [Concomitant]
     Dosage: 60 U, EACH EVENING
  8. TRICOR [Concomitant]
     Dosage: UNK, UNKNOWN
  9. LISINOPRIL [Concomitant]
     Dosage: UNK, UNKNOWN

REACTIONS (5)
  - BLOOD GLUCOSE INCREASED [None]
  - CHOLELITHIASIS [None]
  - NAUSEA [None]
  - PANCREATITIS [None]
  - VOMITING [None]
